FAERS Safety Report 23560736 (Version 2)
Quarter: 2024Q1

REPORT INFORMATION
  Report Type: Spontaneous
  Country: US (occurrence: US)
  Receive Date: 20240223
  Receipt Date: 20240318
  Transmission Date: 20240410
  Serious: No
  Sender: FDA-Public Use
  Company Number: US-Calliditas-2024CAL00228

PATIENT
  Age: 42 Year
  Sex: Female

DRUGS (1)
  1. TARPEYO [Suspect]
     Active Substance: BUDESONIDE
     Indication: IgA nephropathy
     Dosage: 16 MG (4 MG CAPSULES) ONCE DAILY
     Route: 048
     Dates: start: 20240129

REACTIONS (15)
  - Abdominal distension [Unknown]
  - Swelling [Unknown]
  - Constipation [Unknown]
  - Hypertension [Unknown]
  - Dizziness [Unknown]
  - Nervousness [Unknown]
  - Product residue present [Unknown]
  - Product physical issue [Unknown]
  - Dyspepsia [Unknown]
  - Influenza [Unknown]
  - Food poisoning [Unknown]
  - Nausea [Unknown]
  - Vomiting [Unknown]
  - Product dose omission issue [Unknown]
  - Headache [Unknown]

NARRATIVE: CASE EVENT DATE: 20240201
